FAERS Safety Report 8879543 (Version 2)
Quarter: 2012Q4

REPORT INFORMATION
  Report Type: 
  Country: SE (occurrence: SE)
  Receive Date: 20121101
  Receipt Date: 20121221
  Transmission Date: 20130627
  Serious: Yes (Death, Hospitalization, Other)
  Sender: FDA-Public Use
  Company Number: SE-ASTELLAS-2012EU009573

PATIENT
  Sex: Male
  Weight: 33.6 kg

DRUGS (8)
  1. PROGRAF [Suspect]
     Indication: IMMUNOSUPPRESSANT DRUG THERAPY
     Dosage: 0.6 mg, bid
     Route: 048
     Dates: start: 20110504
  2. NPLATE [Suspect]
     Indication: IDIOPATHIC THROMBOCYTOPENIC PURPURA
     Dosage: 100 ug, 3xWeekly
     Route: 058
     Dates: start: 20110311, end: 20110318
  3. URSOFALK [Concomitant]
     Dosage: UNK
     Dates: end: 20110512
  4. NIFEDIPINE [Concomitant]
     Dosage: UNK
     Dates: end: 20110403
  5. NEXIUM                             /01479302/ [Concomitant]
     Dosage: UNK
     Dates: start: 20110309, end: 20110512
  6. CYKLOKAPRON [Concomitant]
     Dosage: UNK
     Route: 065
     Dates: start: 20110309, end: 20110512
  7. PREDNISOLONE [Concomitant]
     Dosage: UNK
     Route: 065
     Dates: start: 20110311, end: 20110512
  8. FURIX [Concomitant]
     Dosage: UNK
     Route: 065
     Dates: start: 20110309, end: 20110512

REACTIONS (4)
  - Evans syndrome [Fatal]
  - Haemolytic anaemia [Fatal]
  - Bone marrow necrosis [Fatal]
  - Hyperammonaemic encephalopathy [Fatal]
